FAERS Safety Report 16504336 (Version 3)
Quarter: 2019Q3

REPORT INFORMATION
  Report Type: Spontaneous
  Country: US (occurrence: US)
  Receive Date: 20190701
  Receipt Date: 20190815
  Transmission Date: 20191004
  Serious: Yes (Other)
  Sender: FDA-Public Use
  Company Number: US-PFIZER INC-2019278960

PATIENT
  Age: 61 Year
  Sex: Female
  Weight: 71.2 kg

DRUGS (1)
  1. DEPO-MEDROL [Suspect]
     Active Substance: METHYLPREDNISOLONE ACETATE
     Indication: DYSPNOEA
     Dosage: 80 MG, SINGLE (ONE TIME INJECTION)
     Dates: start: 20190503

REACTIONS (2)
  - Deafness neurosensory [Not Recovered/Not Resolved]
  - Hyperacusis [Not Recovered/Not Resolved]

NARRATIVE: CASE EVENT DATE: 20190504
